FAERS Safety Report 9625443 (Version 1)
Quarter: 2013Q4

REPORT INFORMATION
  Report Type: Spontaneous
  Country: BR (occurrence: BR)
  Receive Date: 20131016
  Receipt Date: 20131016
  Transmission Date: 20140711
  Serious: Yes (Other)
  Sender: FDA-Public Use
  Company Number: BR-ACCORD-019872

PATIENT
  Age: 43 Year
  Sex: Female
  Weight: 47.2 kg

DRUGS (6)
  1. PACLITAXEL [Suspect]
     Indication: METASTASES TO LUNG
     Route: 042
     Dates: start: 20130903, end: 20130903
  2. UNIDEX [Concomitant]
     Dosage: SF 100ML + UNIDEXA
     Route: 042
     Dates: start: 20130903, end: 20130903
  3. CORTISONAL [Concomitant]
     Route: 042
     Dates: start: 20130903, end: 20130903
  4. NAUSETRON [Concomitant]
     Route: 042
     Dates: start: 20130903, end: 20130903
  5. RANITIDINE [Concomitant]
     Route: 042
     Dates: start: 20130903, end: 20130903
  6. DIFENIDRIN [Concomitant]
     Route: 042
     Dates: start: 20130903, end: 20130903

REACTIONS (5)
  - Dyspnoea [Recovered/Resolved]
  - Choking sensation [Recovered/Resolved]
  - Oxygen saturation decreased [Recovered/Resolved]
  - Cyanosis [Recovered/Resolved]
  - Agitation [Recovered/Resolved]
